FAERS Safety Report 9820649 (Version 1)
Quarter: 2013Q4

REPORT INFORMATION
  Report Type: Spontaneous
  Country: US (occurrence: None)
  Receive Date: 20131025
  Receipt Date: 20131025
  Transmission Date: 20140711
  Serious: Yes (Other)
  Sender: FDA-Public Use
  Company Number: AP356-00060-SPO-US

PATIENT
  Age: 50 Year
  Sex: Female

DRUGS (4)
  1. BELVIQ [Suspect]
     Indication: OBESITY
     Route: 048
     Dates: start: 20130717, end: 20130808
  2. BELVIQ [Suspect]
     Indication: WEIGHT CONTROL
     Route: 048
     Dates: start: 20130717, end: 20130808
  3. HUMALOG (INSULIN LISPORO) [Concomitant]
  4. LANTUS (INSULIN GLARGINE) [Concomitant]

REACTIONS (1)
  - Cough [None]
